FAERS Safety Report 7342187-7 (Version None)
Quarter: 2011Q1

REPORT INFORMATION
  Report Type: 
  Country: None (occurrence: None)
  Receive Date: 20110309
  Receipt Date: 20110224
  Transmission Date: 20110831
  Serious: Yes (Other)
  Sender: FDA-Public Use
  Company Number: GB-MYLANLABS-2011S1003975

PATIENT
  Age: 37 Year
  Sex: Female

DRUGS (7)
  1. PHENYTOIN [Interacting]
     Indication: EPILEPSY
     Route: 065
  2. CLONAZEPAM [Concomitant]
     Indication: EPILEPSY
     Route: 065
  3. RUFINAMIDE [Concomitant]
     Indication: EPILEPSY
     Route: 065
  4. LAMOTRIGINE [Suspect]
     Indication: EPILEPSY
     Route: 065
  5. LACOSAMIDE [Interacting]
     Indication: EPILEPSY
     Dosage: INCREASED FROM AN UNKNOWN DOSAGE TO 200 MG/DAY OVER 4 WEEKS
     Route: 065
  6. PHENYTOIN [Interacting]
  7. LAMOTRIGINE [Interacting]

REACTIONS (4)
  - DRUG INTERACTION [None]
  - NEUROTOXICITY [None]
  - BALANCE DISORDER [None]
  - DIPLOPIA [None]
